FAERS Safety Report 6552134-3 (Version None)
Quarter: 2010Q1

REPORT INFORMATION
  Report Type: 
  Country: None (occurrence: None)
  Receive Date: 20100126
  Receipt Date: 20100115
  Transmission Date: 20100710
  Serious: Yes (Hospitalization)
  Sender: FDA-Public Use
  Company Number: SE-JNJFOC-20100105898

PATIENT
  Age: 28 Year
  Sex: Female

DRUGS (10)
  1. REMICADE [Suspect]
     Indication: COLITIS ULCERATIVE
     Route: 042
  2. ASACOL [Suspect]
     Indication: COLITIS ULCERATIVE
     Route: 048
  3. AZATHIOPRINE [Suspect]
     Indication: COLITIS ULCERATIVE
     Route: 048
  4. AZATHIOPRINE [Suspect]
     Route: 048
  5. PREDNISOLONE [Concomitant]
     Indication: COLITIS ULCERATIVE
     Dosage: STARTED IN HER 8TH WEEK OF PREGNANCY FOR 2 WEEKS. RESTARTED IN HER 22ND WEEK FOR 1 WEEK
     Route: 042
  6. PREDNISOLONE [Concomitant]
     Dosage: STARTED IN HER 8TH WEEK OF PREGNANCY
     Route: 042
  7. PREDNISOLONE [Concomitant]
     Dosage: STARTED IN GESTATIONAL WEEK 23
     Route: 048
  8. PREDNISOLONE [Concomitant]
     Dosage: ORAL WAS STARTED AFTER THE 2 WEEKS OF INTRAVENOUS PREDNISOLONE. DOSE WAS THEN REDUCED TO 5 MG/WEEK
     Route: 048
  9. PREDNISOLONE [Concomitant]
     Dosage: STARTED IN GESTATIONAL WEEK 23
     Route: 048
  10. PREDNISOLONE [Concomitant]
     Route: 048

REACTIONS (4)
  - DRUG EXPOSURE DURING PREGNANCY [None]
  - FOETAL HYPOKINESIA [None]
  - PREMATURE LABOUR [None]
  - UMBILICAL CORD VASCULAR DISORDER [None]
